FAERS Safety Report 20920852 (Version 5)
Quarter: 2025Q1

REPORT INFORMATION
  Report Type: Report from Study
  Country: BR (occurrence: BR)
  Receive Date: 20220606
  Receipt Date: 20250131
  Transmission Date: 20250409
  Serious: Yes (Hospitalization, Other)
  Sender: GLAXOSMITHKLINE
  Company Number: BR-GLAXOSMITHKLINE-BR2019GSK004973

PATIENT

DRUGS (4)
  1. BELIMUMAB [Suspect]
     Active Substance: BELIMUMAB
     Indication: Systemic lupus erythematosus
     Route: 042
     Dates: start: 20170205
  2. BELIMUMAB [Suspect]
     Active Substance: BELIMUMAB
     Route: 042
  3. BELIMUMAB [Suspect]
     Active Substance: BELIMUMAB
     Route: 042
  4. BELIMUMAB [Suspect]
     Active Substance: BELIMUMAB
     Route: 042

REACTIONS (19)
  - Meningitis [Recovered/Resolved]
  - Inappropriate schedule of product administration [Recovered/Resolved]
  - Nausea [Recovered/Resolved]
  - Asthenia [Recovered/Resolved]
  - Headache [Recovered/Resolved]
  - Hip arthroplasty [Recovered/Resolved]
  - Product dose omission issue [Recovered/Resolved]
  - Inappropriate schedule of product administration [Unknown]
  - Product availability issue [Unknown]
  - Surgery [Recovered/Resolved]
  - Inappropriate schedule of product administration [Recovered/Resolved]
  - Inappropriate schedule of product administration [Recovering/Resolving]
  - Inappropriate schedule of product administration [Unknown]
  - Inappropriate schedule of product administration [Not Recovered/Not Resolved]
  - Inappropriate schedule of product administration [Unknown]
  - Product preparation issue [Unknown]
  - Discomfort [Unknown]
  - Fall [Not Recovered/Not Resolved]
  - Inappropriate schedule of product administration [Not Recovered/Not Resolved]

NARRATIVE: CASE EVENT DATE: 20220301
